FAERS Safety Report 13546887 (Version 1)
Quarter: 2017Q2

REPORT INFORMATION
  Report Type: Spontaneous
  Country: AU (occurrence: AU)
  Receive Date: 20170515
  Receipt Date: 20170515
  Transmission Date: 20170830
  Serious: Yes (Hospitalization)
  Sender: FDA-Public Use
  Company Number: AU-INGENUS PHARMACEUTICALS NJ, LLC-ING201705-000234

PATIENT
  Age: 13 Year
  Sex: Female

DRUGS (2)
  1. PHENTERMINE HYDROCHLORIDE. [Suspect]
     Active Substance: PHENTERMINE HYDROCHLORIDE
  2. VARENICLINE [Suspect]
     Active Substance: VARENICLINE

REACTIONS (10)
  - Overdose [Recovered/Resolved]
  - Asthenia [Recovered/Resolved]
  - Anxiety [Recovered/Resolved]
  - Vomiting [Recovered/Resolved]
  - Sinus tachycardia [Recovered/Resolved]
  - Hyperhidrosis [Recovered/Resolved]
  - Muscular weakness [Recovered/Resolved]
  - Palpitations [Recovered/Resolved]
  - Toxicity to various agents [Recovered/Resolved]
  - Dizziness [Recovered/Resolved]
